FAERS Safety Report 12411120 (Version 1)
Quarter: 2016Q2

REPORT INFORMATION
  Report Type: Spontaneous
  Country: US (occurrence: None)
  Receive Date: 20160526
  Receipt Date: 20160526
  Transmission Date: 20160815
  Serious: Yes (Hospitalization)
  Sender: FDA-Public Use
  Company Number: None

PATIENT
  Age: 69 Year
  Sex: Female
  Weight: 51.26 kg

DRUGS (13)
  1. FERROUS SULFA [Concomitant]
  2. ATIVAN [Concomitant]
     Active Substance: LORAZEPAM
  3. ANTI-PREVACID [Concomitant]
  4. VITAMIN D3 [Concomitant]
     Active Substance: CHOLECALCIFEROL
  5. FORTEO [Suspect]
     Active Substance: TERIPARATIDE
     Indication: OSTEOPOROSIS
     Dosage: 1 INJECTION
     Dates: start: 20160307, end: 20160319
  6. MULTIVITAMIN [Concomitant]
     Active Substance: VITAMINS
  7. VASOTEC [Concomitant]
     Active Substance: ENALAPRIL MALEATE
  8. CLOPIDOGREL [Concomitant]
     Active Substance: CLOPIDOGREL BISULFATE
  9. TYLENOL [Concomitant]
     Active Substance: ACETAMINOPHEN
  10. CITREAL CALCIUM [Concomitant]
  11. FLUOXETINE [Concomitant]
     Active Substance: FLUOXETINE HYDROCHLORIDE
  12. TRIAMTERENE. [Concomitant]
     Active Substance: TRIAMTERENE
  13. ATORVASTATIN [Concomitant]
     Active Substance: ATORVASTATIN

REACTIONS (3)
  - Dizziness [None]
  - Impaired driving ability [None]
  - Speech disorder [None]

NARRATIVE: CASE EVENT DATE: 20160318
